FAERS Safety Report 13761399 (Version 1)
Quarter: 2017Q3

REPORT INFORMATION
  Report Type: Spontaneous
  Country: FR (occurrence: FR)
  Receive Date: 20170717
  Receipt Date: 20170717
  Transmission Date: 20171127
  Serious: Yes (Hospitalization, Disabling, Congenital Anomaly, Other)
  Sender: FDA-Public Use
  Company Number: FR-ABBVIE-08P-056-0494687-00

PATIENT
  Sex: Male

DRUGS (1)
  1. EPILIM [Suspect]
     Active Substance: VALPROATE SODIUM
     Indication: MATERNAL EXPOSURE TIMING UNSPECIFIED
     Route: 064

REACTIONS (29)
  - Abnormal behaviour [Not Recovered/Not Resolved]
  - Motor dysfunction [Not Recovered/Not Resolved]
  - Toe walking [Not Recovered/Not Resolved]
  - Developmental delay [Not Recovered/Not Resolved]
  - Disinhibition [Not Recovered/Not Resolved]
  - Bradycardia [Not Recovered/Not Resolved]
  - Sensory processing disorder [Not Recovered/Not Resolved]
  - Cyanosis [Not Recovered/Not Resolved]
  - Muscle twitching [Not Recovered/Not Resolved]
  - Dysgraphia [Not Recovered/Not Resolved]
  - Intellectual disability [Not Recovered/Not Resolved]
  - Dysmorphism [Not Recovered/Not Resolved]
  - Language disorder [Not Recovered/Not Resolved]
  - Personality disorder [Not Recovered/Not Resolved]
  - Foetal exposure during pregnancy [Unknown]
  - Dyscalculia [Not Recovered/Not Resolved]
  - Reading disorder [Not Recovered/Not Resolved]
  - Otitis media [Not Recovered/Not Resolved]
  - Tic [Not Recovered/Not Resolved]
  - Eye movement disorder [Not Recovered/Not Resolved]
  - Cognitive disorder [Not Recovered/Not Resolved]
  - Speech disorder [Not Recovered/Not Resolved]
  - Asthenia [Not Recovered/Not Resolved]
  - Disturbance in attention [Not Recovered/Not Resolved]
  - Withdrawal syndrome [Not Recovered/Not Resolved]
  - Clonic convulsion [Not Recovered/Not Resolved]
  - Oxygen saturation decreased [Not Recovered/Not Resolved]
  - Foetal anticonvulsant syndrome [Not Recovered/Not Resolved]
  - Conductive deafness [Not Recovered/Not Resolved]
